FAERS Safety Report 21115232 (Version 3)
Quarter: 2022Q3

REPORT INFORMATION
  Report Type: Spontaneous
  Country: CN (occurrence: None)
  Receive Date: 20220721
  Receipt Date: 20220930
  Transmission Date: 20221027
  Serious: Yes (Hospitalization, Other)
  Sender: FDA-Public Use
  Company Number: 2022A240039

PATIENT
  Age: 689 Month
  Sex: Male
  Weight: 58 kg

DRUGS (1)
  1. IMFINZI [Suspect]
     Active Substance: DURVALUMAB
     Indication: Small cell lung cancer extensive stage
     Dosage: 1000MG/CYCLE
     Route: 042
     Dates: start: 20220314, end: 20220314

REACTIONS (4)
  - Full blood count abnormal [Recovered/Resolved]
  - Platelet count decreased [Recovered/Resolved]
  - Asthenia [Recovered/Resolved]
  - Sepsis [Recovered/Resolved]

NARRATIVE: CASE EVENT DATE: 20220601
